FAERS Safety Report 20162041 (Version 3)
Quarter: 2022Q1

REPORT INFORMATION
  Report Type: Spontaneous
  Country: US (occurrence: US)
  Receive Date: 20211208
  Receipt Date: 20220214
  Transmission Date: 20220424
  Serious: Yes (Death, Other)
  Sender: FDA-Public Use
  Company Number: US-SAOL THERAPEUTICS-2021SAO00402

PATIENT
  Age: 40 Year
  Sex: Male
  Weight: 94.059 kg

DRUGS (13)
  1. LIORESAL [Suspect]
     Active Substance: BACLOFEN
     Indication: Muscle spasticity
     Dosage: UNK
     Route: 037
     Dates: start: 20160111
  2. LIORESAL [Suspect]
     Active Substance: BACLOFEN
     Dosage: 875.8 ?G, \DAY
     Route: 037
     Dates: end: 20211118
  3. LIORESAL [Suspect]
     Active Substance: BACLOFEN
     Dosage: 96 ?G, \DAY; DECREASED TO MINIMUM RATE
     Route: 037
     Dates: start: 20211118, end: 20211122
  4. XEOMIN [Concomitant]
     Active Substance: INCOBOTULINUMTOXINA
     Dosage: 400 IU IN LUE/LLE
     Route: 051
     Dates: start: 20211025
  5. BOTOX [Concomitant]
     Active Substance: ONABOTULINUMTOXINA
  6. LINZESS [Concomitant]
     Active Substance: LINACLOTIDE
     Dosage: 145 ?G, 1X/DAY IN AM
     Route: 048
  7. COLACE [Concomitant]
     Active Substance: DOCUSATE SODIUM
     Dosage: 100 MG, 2X/DAY
     Route: 048
  8. DULCOLAX NOS [Concomitant]
     Active Substance: BISACODYL OR DOCUSATE SODIUM
  9. SUBOXONE [Concomitant]
     Active Substance: BUPRENORPHINE HYDROCHLORIDE\NALOXONE HYDROCHLORIDE
     Dosage: 1 DOSAGE FORM (FILM), 1X/DAY
     Route: 002
  10. GABAPENTIN [Concomitant]
     Active Substance: GABAPENTIN
     Dosage: 800 MG, 3X/DAY
     Route: 048
  11. LIDOCAINE\PRILOCAINE [Concomitant]
     Active Substance: LIDOCAINE\PRILOCAINE
     Dosage: 1 DOSAGE UNITS, ONCE
     Route: 061
  12. TRAZODONE [Concomitant]
     Active Substance: TRAZODONE HYDROCHLORIDE
     Dosage: 150 MG, 1X/DAY AT BEDTIME
     Route: 048
  13. EFFEXOR XR [Concomitant]
     Active Substance: VENLAFAXINE HYDROCHLORIDE
     Dosage: 150 MG, 1X/DAY IN AM
     Route: 048

REACTIONS (7)
  - Fall [Recovered/Resolved]
  - Drug withdrawal syndrome [Unknown]
  - Hyperhidrosis [Unknown]
  - Rash [Unknown]
  - Death [Fatal]
  - Device failure [Recovered/Resolved]
  - Weight increased [Unknown]

NARRATIVE: CASE EVENT DATE: 20211027
